FAERS Safety Report 4872418-4 (Version None)
Quarter: 2006Q1

REPORT INFORMATION
  Report Type: 
  Country: None (occurrence: None)
  Receive Date: 20060104
  Receipt Date: 20051005
  Transmission Date: 20060701
  Serious: Yes (Hospitalization)
  Sender: FDA-Public Use
  Company Number: US-MERCK-0510USA04113

PATIENT
  Age: 74 Year
  Sex: Male
  Weight: 68 kg

DRUGS (1)
  1. VIOXX [Suspect]
     Indication: ARTHRALGIA
     Route: 048
     Dates: end: 20010101

REACTIONS (7)
  - ACUTE MYOCARDIAL INFARCTION [None]
  - ATRIOVENTRICULAR BLOCK COMPLETE [None]
  - CORONARY ARTERY DISEASE [None]
  - DYSLIPIDAEMIA [None]
  - HYPOTENSION [None]
  - PSORIASIS [None]
  - VENTRICULAR TACHYCARDIA [None]
